FAERS Safety Report 7006298-8 (Version None)
Quarter: 2010Q3

REPORT INFORMATION
  Report Type: 
  Country: None (occurrence: None)
  Receive Date: 20100921
  Receipt Date: 20100909
  Transmission Date: 20110219
  Serious: No
  Sender: FDA-Public Use
  Company Number: US-PFIZER INC-2010114778

PATIENT
  Age: 56 Year
  Sex: Female

DRUGS (1)
  1. ESTRING [Suspect]
     Dosage: 2 MG, EVERY 3 MONTHS
     Dates: start: 20070501, end: 20091201

REACTIONS (3)
  - HEADACHE [None]
  - HEART RATE INCREASED [None]
  - PYREXIA [None]
